FAERS Safety Report 5583416-X (Version None)
Quarter: 2008Q1

REPORT INFORMATION
  Report Type: 
  Country: None (occurrence: None)
  Receive Date: 20080107
  Receipt Date: 20071228
  Transmission Date: 20080703
  Serious: Yes (Hospitalization)
  Sender: FDA-Public Use
  Company Number: FR-PFIZER INC-2008000017

PATIENT
  Sex: Female
  Weight: 68 kg

DRUGS (1)
  1. SU-011,248 [Suspect]
     Indication: BREAST CANCER
     Route: 048
     Dates: start: 20071219, end: 20071227

REACTIONS (1)
  - FEMUR FRACTURE [None]
